FAERS Safety Report 5720482-2 (Version None)
Quarter: 2008Q2

REPORT INFORMATION
  Report Type: 
  Country: None (occurrence: None)
  Receive Date: 20080428
  Receipt Date: 20080418
  Transmission Date: 20081010
  Serious: Yes (Hospitalization)
  Sender: FDA-Public Use
  Company Number: FR-PFIZER INC-2008035235

PATIENT
  Sex: Male
  Weight: 76 kg

DRUGS (8)
  1. MARAVIROC [Suspect]
     Route: 048
  2. RALTEGRAVIR [Suspect]
     Route: 048
  3. DARUNAVIR [Suspect]
     Route: 048
  4. ZIDOVUDINE [Suspect]
     Route: 048
  5. FOSCARNET [Suspect]
     Route: 048
  6. RITONAVIR [Suspect]
     Route: 042
  7. ETRAVIRINE [Concomitant]
     Route: 048
  8. ATOVAQUONE [Concomitant]
     Route: 048

REACTIONS (3)
  - BACTERAEMIA [None]
  - DIARRHOEA [None]
  - HYPOKALAEMIA [None]
